FAERS Safety Report 21396634 (Version 1)
Quarter: 2022Q3

REPORT INFORMATION
  Report Type: Spontaneous
  Country: US (occurrence: US)
  Receive Date: 20220930
  Receipt Date: 20220930
  Transmission Date: 20221027
  Serious: No
  Sender: FDA-Public Use
  Company Number: US-BRISTOL-MYERS SQUIBB COMPANY-2022-113100

PATIENT
  Age: 39 Year
  Sex: Male

DRUGS (2)
  1. OPDIVO [Suspect]
     Active Substance: NIVOLUMAB
     Indication: Metastatic renal cell carcinoma
     Dosage: IV OVER 30 MINUTES IN NORMAL SALINE FOR OPDIVO?IV OVER 30 MINUTES EVERY 21 DAYS
     Route: 042
  2. IPILIMUMAB [Suspect]
     Active Substance: IPILIMUMAB
     Indication: Metastatic renal cell carcinoma
     Dosage: IV OVER 30 MINUTES  IN NORMAL SALINE FOR OPDIVO??IV OVER 30 MINUTES EVERY 21 DAYS
     Route: 042
     Dates: start: 20220830

REACTIONS (2)
  - Adverse event [Unknown]
  - Intentional product use issue [Unknown]

NARRATIVE: CASE EVENT DATE: 20220920
